FAERS Safety Report 17480398 (Version 1)
Quarter: 2020Q1

REPORT INFORMATION
  Report Type: Spontaneous
  Country: US (occurrence: US)
  Receive Date: 20200228
  Receipt Date: 20200228
  Transmission Date: 20200409
  Serious: No
  Sender: FDA-Public Use
  Company Number: US-JNJFOC-20200229749

PATIENT
  Sex: Female

DRUGS (1)
  1. WOMENS ROGAINE [Suspect]
     Active Substance: MINOXIDIL
     Indication: PRODUCT USED FOR UNKNOWN INDICATION
     Dosage: DOSE:2 A DAY AND FREQUENCY: ONCE OR TWICE.?THE PRODUCT WAS LAST ADMINISTERED ON 18-JAN-2020
     Route: 061
     Dates: start: 20150218

REACTIONS (5)
  - Inappropriate schedule of product administration [Unknown]
  - Application site pruritus [Recovering/Resolving]
  - Application site dryness [Recovered/Resolved]
  - Application site exfoliation [Recovered/Resolved]
  - Alopecia [Recovered/Resolved]

NARRATIVE: CASE EVENT DATE: 20150218
